FAERS Safety Report 14149939 (Version 1)
Quarter: 2017Q4

REPORT INFORMATION
  Report Type: Spontaneous
  Country: US (occurrence: US)
  Receive Date: 20171101
  Receipt Date: 20171101
  Transmission Date: 20180321
  Serious: No
  Sender: FDA-Public Use
  Company Number: US-MERZ NORTH AMERICA, INC.-17MRZ-00322

PATIENT
  Sex: Female

DRUGS (1)
  1. XEOMIN [Suspect]
     Active Substance: INCOBOTULINUMTOXINA
     Indication: PRODUCT USED FOR UNKNOWN INDICATION
     Dosage: 20 UNITS TO GLABELLA?18 UNITS TO CROW^S FEET?TOTAL DOSE OF 38 UNITS
     Route: 065
     Dates: start: 20171024, end: 20171024

REACTIONS (4)
  - Unevaluable event [Unknown]
  - Hypoaesthesia [Unknown]
  - Blepharospasm [Unknown]
  - Pain [Unknown]

NARRATIVE: CASE EVENT DATE: 20171024
